FAERS Safety Report 7940533-4 (Version None)
Quarter: 2011Q4

REPORT INFORMATION
  Report Type: 
  Country: None (occurrence: None)
  Receive Date: 20111108
  Receipt Date: 20100927
  Transmission Date: 20120403
  Serious: Yes (Other)
  Sender: FDA-Public Use
  Company Number: PHHY2010US63549

PATIENT
  Age: 48 Year
  Sex: Female
  Weight: 73.9 kg

DRUGS (9)
  1. HERCEPTIN [Concomitant]
  2. NEXIUM [Concomitant]
  3. TOPRAL (SULTOPRIDE) [Concomitant]
  4. FEMARA [Concomitant]
  5. COUMADIN [Concomitant]
  6. ZOMETA [Suspect]
     Indication: METASTASES TO BONE
     Dosage: 4MG EVERY 4 WEEKS, INTRAVENOUS
     Route: 042
     Dates: start: 20030901, end: 20080101
  7. ABILIFY [Concomitant]
  8. AMBIEN [Concomitant]
  9. LITHIUM CARBONATE [Concomitant]

REACTIONS (1)
  - OSTEONECROSIS OF JAW [None]
